FAERS Safety Report 7000955-5 (Version None)
Quarter: 2010Q3

REPORT INFORMATION
  Report Type: 
  Country: None (occurrence: None)
  Receive Date: 20100920
  Receipt Date: 20080114
  Transmission Date: 20110219
  Serious: Yes (Hospitalization, Other)
  Sender: FDA-Public Use
  Company Number: US-ASTRAZENECA-2007UW19713

PATIENT
  Age: 605 Month
  Sex: Male
  Weight: 117.9 kg

DRUGS (14)
  1. SEROQUEL [Suspect]
     Indication: BIPOLAR DISORDER
     Dosage: VARIOUS DOSES, INCLUDING BUT NOT LIMITED TO 600 MG
     Route: 048
     Dates: start: 20050401, end: 20070501
  2. SEROQUEL [Suspect]
     Indication: DEPRESSION
     Dosage: VARIOUS DOSES, INCLUDING BUT NOT LIMITED TO 600 MG
     Route: 048
     Dates: start: 20050401, end: 20070501
  3. SEROQUEL [Suspect]
     Dosage: 100MG TO 600 MG
     Route: 048
     Dates: start: 20050512, end: 20070219
  4. SEROQUEL [Suspect]
     Dosage: 100MG TO 600 MG
     Route: 048
     Dates: start: 20050512, end: 20070219
  5. ABILIFY [Concomitant]
     Dates: start: 20070101
  6. ZOLOFT [Concomitant]
     Dosage: 100 MG - 150 MG
     Dates: start: 20050101
  7. ZOLOFT [Concomitant]
     Route: 048
     Dates: start: 20050512
  8. INVEGA [Concomitant]
     Dates: start: 20070101
  9. RITALIN [Concomitant]
     Route: 048
     Dates: start: 20030823
  10. DEPAKOTE [Concomitant]
     Route: 048
     Dates: start: 20030823
  11. STRATTERA [Concomitant]
     Route: 048
     Dates: start: 20050512
  12. ASPIRIN [Concomitant]
     Route: 048
     Dates: start: 20060209
  13. PROMETHAZINE [Concomitant]
     Route: 048
     Dates: start: 20060209
  14. AMBIEN [Concomitant]
     Indication: SLEEP DISORDER
     Route: 048
     Dates: start: 20070219

REACTIONS (5)
  - DIABETES MELLITUS [None]
  - GLUCOSE TOLERANCE IMPAIRED [None]
  - ROTATOR CUFF REPAIR [None]
  - SUICIDAL BEHAVIOUR [None]
  - SUICIDAL IDEATION [None]
